FAERS Safety Report 4887095-6 (Version None)
Quarter: 2006Q1

REPORT INFORMATION
  Report Type: 
  Country: None (occurrence: None)
  Receive Date: 20060120
  Receipt Date: 20050317
  Transmission Date: 20060701
  Serious: Yes (Hospitalization, Other)
  Sender: FDA-Public Use
  Company Number: US-MERCK-0503USA03477

PATIENT
  Age: 55 Year
  Sex: Female
  Weight: 77 kg

DRUGS (36)
  1. VICODIN [Concomitant]
     Route: 065
  2. ULTRAM [Concomitant]
     Route: 065
  3. AMBIEN [Concomitant]
     Route: 065
  4. KEFLEX [Concomitant]
     Route: 065
  5. TOPROL-XL [Concomitant]
     Route: 065
  6. LOTREL [Concomitant]
     Route: 065
  7. BENICAR [Concomitant]
     Route: 065
  8. ASPIRIN [Concomitant]
     Route: 065
  9. NITROQUICK [Concomitant]
     Route: 065
  10. FLEXERIL [Concomitant]
     Route: 048
  11. FLEXEN (NAPROXEN) [Concomitant]
     Route: 065
  12. COMPAZINE [Concomitant]
     Route: 065
  13. TEQUIN [Concomitant]
     Route: 065
  14. DURAGESIC-100 [Concomitant]
     Route: 065
  15. PLAVIX [Concomitant]
     Route: 065
  16. LEVAQUIN [Concomitant]
     Route: 065
  17. TEMAZEPAM [Concomitant]
     Route: 065
  18. PREDNISONE [Concomitant]
     Route: 065
  19. PLETAL [Concomitant]
     Route: 065
  20. ADVAIR DISKUS 250/50 [Concomitant]
     Route: 065
  21. ZOCOR [Concomitant]
     Route: 048
  22. COMBIVENT [Concomitant]
     Route: 065
  23. DEMEROL [Concomitant]
     Route: 065
  24. METHADONE HYDROCHLORIDE [Concomitant]
     Route: 065
  25. REGLAN [Concomitant]
     Route: 065
  26. DARVOCET-N 50 [Concomitant]
     Route: 065
  27. VALIUM [Concomitant]
     Route: 065
  28. SINGULAIR [Concomitant]
     Route: 048
  29. EFFEXOR [Concomitant]
     Route: 065
  30. CELEBREX [Concomitant]
     Route: 065
  31. DILAUDID [Concomitant]
     Route: 065
  32. VIOXX [Suspect]
     Indication: ARTHRITIS
     Route: 048
     Dates: start: 20021114, end: 20030829
  33. SOMA [Concomitant]
     Route: 065
  34. OXYCODONE [Concomitant]
     Route: 065
  35. BACLOFEN [Concomitant]
     Route: 065
  36. DIFLUCAN [Concomitant]
     Route: 065

REACTIONS (55)
  - ABDOMINAL DISCOMFORT [None]
  - ABDOMINAL PAIN [None]
  - ABDOMINAL WALL ABSCESS [None]
  - ABSCESS DRAINAGE [None]
  - ANGINA UNSTABLE [None]
  - ANXIETY DISORDER [None]
  - ARRHYTHMIA [None]
  - ASTHMA [None]
  - BRONCHIAL HYPERACTIVITY [None]
  - CARDIOVASCULAR DISORDER [None]
  - CATHETER REMOVAL [None]
  - CELLULITIS [None]
  - CEREBROVASCULAR ACCIDENT [None]
  - CHEST PAIN [None]
  - CHRONIC OBSTRUCTIVE PULMONARY DISEASE [None]
  - CONSTIPATION [None]
  - DEHYDRATION [None]
  - DEVICE MALFUNCTION [None]
  - DIARRHOEA [None]
  - DIZZINESS [None]
  - DRUG WITHDRAWAL SYNDROME [None]
  - DYSPNOEA [None]
  - FACIAL PARESIS [None]
  - FOOT FRACTURE [None]
  - GASTRITIS [None]
  - GASTROOESOPHAGEAL REFLUX DISEASE [None]
  - HAEMOPTYSIS [None]
  - HYPERTENSION [None]
  - HYPOKALAEMIA [None]
  - HYPOTENSION [None]
  - HYPOXIA [None]
  - INTERVERTEBRAL DISC OPERATION [None]
  - MAJOR DEPRESSION [None]
  - MEDICAL DEVICE IMPLANTATION [None]
  - MEDICAL DEVICE REMOVAL [None]
  - MENTAL STATUS CHANGES [None]
  - NAUSEA [None]
  - NECK PAIN [None]
  - OESOPHAGITIS [None]
  - PAIN [None]
  - PLEURAL EFFUSION [None]
  - PNEUMONIA [None]
  - PNEUMONITIS [None]
  - PYELONEPHRITIS [None]
  - PYREXIA [None]
  - SMALL INTESTINAL OBSTRUCTION [None]
  - SPINAL CORPECTOMY [None]
  - SPINAL OSTEOARTHRITIS [None]
  - STAPHYLOCOCCAL INFECTION [None]
  - SURGERY [None]
  - TRANSIENT ISCHAEMIC ATTACK [None]
  - ULCER [None]
  - URINARY RETENTION [None]
  - URINARY TRACT INFECTION [None]
  - VOMITING [None]
